FAERS Safety Report 10696843 (Version 1)
Quarter: 2015Q1

REPORT INFORMATION
  Report Type: Spontaneous
  Country: GB (occurrence: GB)
  Receive Date: 20150108
  Receipt Date: 20150108
  Transmission Date: 20150721
  Serious: Yes (Other)
  Sender: FDA-Public Use
  Company Number: GB-ASTRAZENECA-2015SE00885

PATIENT
  Sex: Female
  Weight: 95 kg

DRUGS (3)
  1. ROSUVASTATIN [Suspect]
     Active Substance: ROSUVASTATIN
     Indication: HYPERCHOLESTEROLAEMIA
     Route: 048
  2. FUROSEMIDE. [Concomitant]
     Active Substance: FUROSEMIDE
     Route: 048
  3. ROSUVASTATIN [Suspect]
     Active Substance: ROSUVASTATIN
     Indication: HYPERCHOLESTEROLAEMIA
     Route: 048
     Dates: start: 20141110, end: 20141114

REACTIONS (2)
  - Hallucination [Recovered/Resolved]
  - Stress [Unknown]
